FAERS Safety Report 15756247 (Version 2)
Quarter: 2019Q1

REPORT INFORMATION
  Report Type: Report from Study
  Country: JP (occurrence: JP)
  Receive Date: 20181224
  Receipt Date: 20190227
  Transmission Date: 20190417
  Serious: Yes (Hospitalization, Other)
  Sender: FDA-Public Use
  Company Number: JP-009507513-1810JPN001150J

PATIENT
  Age: 60 Year
  Sex: Male
  Weight: 64 kg

DRUGS (1)
  1. KEYTRUDA [Suspect]
     Active Substance: PEMBROLIZUMAB
     Indication: ACRAL LENTIGINOUS MELANOMA
     Dosage: 2 MILLIGRAM/KILOGRAM, Q3W
     Route: 041
     Dates: start: 20170728, end: 20180423

REACTIONS (3)
  - Malignant neoplasm progression [Unknown]
  - Pruritus [Not Recovered/Not Resolved]
  - Herpes zoster [Recovered/Resolved]

NARRATIVE: CASE EVENT DATE: 20171206
